FAERS Safety Report 7728620-7 (Version None)
Quarter: 2011Q3

REPORT INFORMATION
  Report Type: 
  Country: None (occurrence: None)
  Receive Date: 20110831
  Receipt Date: 20110831
  Transmission Date: 20111222
  Serious: No
  Sender: FDA-Public Use
  Company Number: None

PATIENT
  Sex: Female

DRUGS (4)
  1. LOCOID LIPOCREAM [Suspect]
     Indication: DERMATITIS
     Dosage: 3X/DAY CREAM LOCOID 1%
     Route: 061
     Dates: start: 20081010, end: 20081101
  2. LOCOID LIPOCREAM [Suspect]
     Indication: RASH
     Dosage: 3X/DAY CREAM LOCOID 1%
     Route: 061
     Dates: start: 20081010, end: 20081101
  3. CLOBETASOL PROPIONATE [Suspect]
     Indication: DERMATITIS
     Dosage: 3X/DAY CREAM 1) CLOBESTASOL
     Route: 061
     Dates: start: 20081121, end: 20081201
  4. CLOBETASOL PROPIONATE [Suspect]
     Indication: RASH
     Dosage: 3X/DAY CREAM 1) CLOBESTASOL
     Route: 061
     Dates: start: 20081121, end: 20081201

REACTIONS (4)
  - BURNING SENSATION [None]
  - PRURITUS [None]
  - RASH [None]
  - HAEMORRHAGE [None]
